FAERS Safety Report 8677834 (Version 3)
Quarter: 2012Q4

REPORT INFORMATION
  Report Type: 
  Country: US (occurrence: US)
  Receive Date: 20120723
  Receipt Date: 20121015
  Transmission Date: 20130627
  Serious: Yes (Other)
  Sender: FDA-Public Use
  Company Number: US-ASTRAZENECA-2012SE49457

PATIENT
  Age: 67 Year
  Sex: Female

DRUGS (3)
  1. SYMBICORT PMDI [Suspect]
     Route: 055
  2. NEXIUM [Suspect]
     Route: 048
  3. OMEPRAZOLE [Suspect]
     Route: 048

REACTIONS (7)
  - Lung neoplasm malignant [Unknown]
  - Metastatic neoplasm [Unknown]
  - Neoplasm malignant [Unknown]
  - Gastrooesophageal reflux disease [Unknown]
  - Malaise [Unknown]
  - Drug dose omission [Unknown]
  - Drug effect incomplete [Unknown]
